FAERS Safety Report 7573218-7 (Version None)
Quarter: 2011Q2

REPORT INFORMATION
  Report Type: 
  Country: None (occurrence: None)
  Receive Date: 20110620
  Receipt Date: 20110606
  Transmission Date: 20111010
  Serious: Yes (Other)
  Sender: FDA-Public Use
  Company Number: VAL_00582_2011

PATIENT
  Age: 5 Year
  Sex: Female
  Weight: 15.7 kg

DRUGS (2)
  1. CALCITRIOL [Suspect]
     Indication: HYPOCALCAEMIA
     Dosage: (DF ORAL)
     Route: 048
  2. CALCIUM CARBONATE [Concomitant]

REACTIONS (2)
  - CALCIUM IONISED INCREASED [None]
  - HYPERCALCAEMIA [None]
